FAERS Safety Report 7560946-2 (Version None)
Quarter: 2011Q2

REPORT INFORMATION
  Report Type: 
  Country: None (occurrence: None)
  Receive Date: 20110621
  Receipt Date: 20110615
  Transmission Date: 20111010
  Serious: Yes (Hospitalization)
  Sender: FDA-Public Use
  Company Number: US-BAXTER-2011BH019656

PATIENT
  Age: 62 Year
  Sex: Female

DRUGS (2)
  1. DIANEAL [Suspect]
     Indication: PERITONEAL DIALYSIS
     Route: 033
     Dates: start: 20090101
  2. MEDICATION [Suspect]
     Indication: HERPES ZOSTER
     Route: 065

REACTIONS (5)
  - MENTAL DISORDER [None]
  - SYNCOPE [None]
  - FALL [None]
  - LOSS OF CONSCIOUSNESS [None]
  - HERPES ZOSTER [None]
